FAERS Safety Report 8552942-3 (Version None)
Quarter: 2012Q3

REPORT INFORMATION
  Report Type: 
  Country: None (occurrence: None)
  Receive Date: 20120731
  Receipt Date: 20120727
  Transmission Date: 20120928
  Serious: Yes (Other)
  Sender: FDA-Public Use
  Company Number: PHHY2012JP062489

PATIENT
  Age: 32 Year
  Sex: Female

DRUGS (3)
  1. METHOTREXATE [Concomitant]
     Indication: PROPHYLAXIS AGAINST GRAFT VERSUS HOST DISEASE
  2. NEORAL [Suspect]
     Indication: PROPHYLAXIS AGAINST GRAFT VERSUS HOST DISEASE
  3. NEORAL [Suspect]
     Indication: STEM CELL TRANSPLANT

REACTIONS (4)
  - GRAFT VERSUS HOST DISEASE [None]
  - POST TRANSPLANT DISTAL LIMB SYNDROME [None]
  - IMMUNOSUPPRESSANT DRUG LEVEL INCREASED [None]
  - PAIN IN EXTREMITY [None]
